FAERS Safety Report 21285071 (Version 4)
Quarter: 2022Q4

REPORT INFORMATION
  Report Type: Report from Study
  Country: EC (occurrence: EC)
  Receive Date: 20220902
  Receipt Date: 20221020
  Transmission Date: 20230113
  Serious: Yes (Hospitalization, Other)
  Sender: FDA-Public Use
  Company Number: EC-JNJFOC-20220853595

PATIENT
  Age: 47 Year
  Sex: Female

DRUGS (4)
  1. ESKETAMINE [Suspect]
     Active Substance: ESKETAMINE
     Indication: Major depression
     Dosage: INDUCTION PHASE (WEEK 1 TO 4), TOTAL 2 DOSES
     Dates: start: 20220818, end: 20220819
  2. ESKETAMINE [Suspect]
     Active Substance: ESKETAMINE
     Indication: Suicidal ideation
     Dates: start: 20220908, end: 20220908
  3. ESKETAMINE [Suspect]
     Active Substance: ESKETAMINE
     Dates: start: 20220929, end: 20220929
  4. ESKETAMINE [Suspect]
     Active Substance: ESKETAMINE
     Dates: start: 20221005, end: 20221005

REACTIONS (6)
  - Suicidal ideation [Unknown]
  - Depression [Recovering/Resolving]
  - Drug ineffective [Unknown]
  - Weight increased [Not Recovered/Not Resolved]
  - Road traffic accident [Unknown]
  - Dizziness [Unknown]

NARRATIVE: CASE EVENT DATE: 20220101
